FAERS Safety Report 22203945 (Version 2)
Quarter: 2023Q2

REPORT INFORMATION
  Report Type: Spontaneous
  Country: US (occurrence: US)
  Receive Date: 20230412
  Receipt Date: 20230627
  Transmission Date: 20230721
  Serious: No
  Sender: FDA-Public Use
  Company Number: US-LUNDBECK-DKLU3059987

PATIENT
  Age: 61 Year
  Sex: Male

DRUGS (2)
  1. VYEPTI [Suspect]
     Active Substance: EPTINEZUMAB-JJMR
     Indication: Product used for unknown indication
     Route: 041
     Dates: start: 202302
  2. KETAMINE [Concomitant]
     Active Substance: KETAMINE
     Indication: Headache
     Route: 065

REACTIONS (1)
  - Drug ineffective [Recovering/Resolving]
